FAERS Safety Report 13472718 (Version 1)
Quarter: 2017Q2

REPORT INFORMATION
  Report Type: Spontaneous
  Country: US (occurrence: US)
  Receive Date: 20170424
  Receipt Date: 20170424
  Transmission Date: 20170830
  Serious: No
  Sender: FDA-Public Use
  Company Number: US-CIPLA LTD.-2016US03841

PATIENT

DRUGS (2)
  1. MEPROBAMATE. [Suspect]
     Active Substance: MEPROBAMATE
     Indication: MUSCLE SPASMS
     Dosage: 400 MG, (THREE TABLETS A DAY)
     Route: 048
  2. MEPROBAMATE. [Suspect]
     Active Substance: MEPROBAMATE
     Indication: SLEEP DISORDER

REACTIONS (1)
  - Drug ineffective [Unknown]
